FAERS Safety Report 5614035-4 (Version None)
Quarter: 2008Q1

REPORT INFORMATION
  Report Type: 
  Country: None (occurrence: None)
  Receive Date: 20080205
  Receipt Date: 20080128
  Transmission Date: 20080703
  Serious: Yes (Other)
  Sender: FDA-Public Use
  Company Number: BR-ASTRAZENECA-2008UW02150

PATIENT
  Age: 30 Year
  Sex: Male
  Weight: 90 kg

DRUGS (4)
  1. SEROQUEL [Suspect]
     Route: 048
     Dates: start: 20080126
  2. AMPLICTIL [Concomitant]
     Indication: SCHIZOPHRENIA
     Route: 048
  3. OLANZAPINE [Concomitant]
     Indication: SCHIZOPHRENIA
     Route: 048
  4. FLUOXETINE [Concomitant]
     Indication: SCHIZOPHRENIA

REACTIONS (2)
  - IRRITABILITY [None]
  - SUICIDAL IDEATION [None]
